FAERS Safety Report 8550419-2 (Version None)
Quarter: 2012Q3

REPORT INFORMATION
  Report Type: 
  Country: None (occurrence: None)
  Receive Date: 20120730
  Receipt Date: 20120423
  Transmission Date: 20120928
  Serious: Yes (Hospitalization, Disabling, Other)
  Sender: FDA-Public Use
  Company Number: US-009507513-1011USA01582

PATIENT

DRUGS (9)
  1. FOSAMAX [Suspect]
     Dosage: UNK UNK, QD
     Route: 048
     Dates: start: 20030312
  2. THERAPY UNSPECIFIED [Concomitant]
     Indication: BLOOD CHOLESTEROL INCREASED
     Dates: start: 19900101
  3. FOSAMAX [Suspect]
  4. PLAVIX [Concomitant]
  5. FOSAMAX [Suspect]
     Indication: OSTEOPENIA
     Dosage: 10 MG, QD
     Route: 048
     Dates: start: 19970701, end: 20011012
  6. FOSAMAX [Suspect]
     Dosage: 35 MG, QD
     Route: 048
     Dates: start: 20020425
  7. CRESTOR [Concomitant]
  8. FOSAMAX [Suspect]
     Indication: OSTEOPOROSIS
     Dosage: 70 MG, QW
     Route: 048
     Dates: start: 20011012, end: 20100301
  9. FOSAMAX [Suspect]
     Route: 048
     Dates: start: 20090106

REACTIONS (69)
  - EXCORIATION [None]
  - FATIGUE [None]
  - CEREBROVASCULAR ACCIDENT [None]
  - RASH [None]
  - TENDON RUPTURE [None]
  - HIATUS HERNIA [None]
  - CHEST PAIN [None]
  - CONTUSION [None]
  - KYPHOSIS [None]
  - DYSURIA [None]
  - ENTHESOPATHY [None]
  - DEAFNESS NEUROSENSORY [None]
  - LOW TURNOVER OSTEOPATHY [None]
  - ANXIETY [None]
  - DIVERTICULITIS [None]
  - GOITRE [None]
  - HAEMATOMA [None]
  - SINUS TACHYCARDIA [None]
  - SLEEP DISORDER [None]
  - DRY MOUTH [None]
  - VAGINAL DISCHARGE [None]
  - TENDONITIS [None]
  - CARDIOVASCULAR DISORDER [None]
  - MUSCLE ATROPHY [None]
  - FALL [None]
  - NEURITIS [None]
  - BURSITIS [None]
  - SKIN DISORDER [None]
  - DYSLIPIDAEMIA [None]
  - CATARACT [None]
  - HAND FRACTURE [None]
  - PNEUMONIA [None]
  - DEHYDRATION [None]
  - SPINAL COLUMN STENOSIS [None]
  - ABDOMINAL DISCOMFORT [None]
  - LEUKOCYTOSIS [None]
  - RADICULOPATHY [None]
  - PHLEBITIS [None]
  - DRUG ADMINISTRATION ERROR [None]
  - ADENOMATOUS POLYPOSIS COLI [None]
  - OSTEOPOROSIS [None]
  - BONE CYST [None]
  - CHOLECYSTITIS [None]
  - ANAEMIA POSTOPERATIVE [None]
  - BACK PAIN [None]
  - INTERVERTEBRAL DISC DEGENERATION [None]
  - GASTROOESOPHAGEAL REFLUX DISEASE [None]
  - HAEMORRHOIDS [None]
  - ASTHENIA [None]
  - NECK PAIN [None]
  - TACHYCARDIA [None]
  - HAIR TEXTURE ABNORMAL [None]
  - ROTATOR CUFF SYNDROME [None]
  - OSTEOARTHRITIS [None]
  - POLYARTHRITIS [None]
  - HEADACHE [None]
  - FEMUR FRACTURE [None]
  - STRESS FRACTURE [None]
  - FRACTURE NONUNION [None]
  - SKIN LESION [None]
  - GALLBLADDER DISORDER [None]
  - CHOLELITHIASIS [None]
  - COLON ADENOMA [None]
  - THYROID NEOPLASM [None]
  - ARTHRALGIA [None]
  - RESTLESS LEGS SYNDROME [None]
  - EXOSTOSIS [None]
  - DIZZINESS [None]
  - DIVERTICULUM [None]
